FAERS Safety Report 8007966-1 (Version None)
Quarter: 2011Q4

REPORT INFORMATION
  Report Type: 
  Country: None (occurrence: None)
  Receive Date: 20111227
  Receipt Date: 20111212
  Transmission Date: 20120403
  Serious: Yes (Other)
  Sender: FDA-Public Use
  Company Number: PHHY2011JP89200

PATIENT
  Age: 58 Year
  Sex: Female

DRUGS (26)
  1. CLOZARIL [Suspect]
     Dosage: 400 MG, DAILY
     Route: 048
     Dates: start: 20110801, end: 20110804
  2. CLOZARIL [Suspect]
     Dosage: 600 MG, DAILY
     Route: 048
     Dates: start: 20110809, end: 20110905
  3. CLOZARIL [Suspect]
     Dosage: 500 MG, DAILY
     Route: 048
     Dates: start: 20110906
  4. QUETIAPINE FUMARATE [Concomitant]
     Dosage: 750 MG
     Dates: start: 20110725
  5. RISPERIDONE [Concomitant]
     Dosage: 09 MG
     Route: 048
     Dates: start: 20110731
  6. LEVOFLOXACIN [Concomitant]
     Dosage: 500 MG, UNK
     Dates: start: 20110805, end: 20110926
  7. CEFTRIAXONE SODIUM [Concomitant]
     Dosage: 1000 MG
  8. CLOZARIL [Suspect]
     Dosage: 300 MG, DAILY
     Route: 048
     Dates: start: 20110728, end: 20110731
  9. LEVOFLOXACIN [Concomitant]
     Dosage: 500 MG, UNK
     Route: 048
  10. CLOZARIL [Suspect]
     Dosage: 600 MG, DAILY
     Route: 048
     Dates: start: 20110101
  11. CLOZARIL [Suspect]
     Dosage: 50 MG, DAILY
     Route: 048
     Dates: start: 20110707, end: 20110711
  12. CLOZARIL [Suspect]
     Dosage: 150 MG, DAILY
     Route: 048
     Dates: start: 20110719, end: 20110720
  13. RISPERIDONE [Concomitant]
     Dosage: 09 MG
     Route: 048
  14. CLOZARIL [Suspect]
     Dosage: 175 MG, DAILY
     Route: 048
     Dates: start: 20110721, end: 20110722
  15. CLOZARIL [Suspect]
     Dosage: 200 MG, DAILY
     Route: 048
     Dates: start: 20110723, end: 20110727
  16. CLOZARIL [Suspect]
     Dosage: 500 MG, DAILY
     Route: 048
     Dates: start: 20110805, end: 20110808
  17. QUETIAPINE FUMARATE [Concomitant]
     Dosage: 400 MG
     Route: 048
  18. CEFCAPENE PIVOXIL HYDROCHLORIDE [Concomitant]
     Dosage: 300 MG
     Dates: start: 20110720, end: 20110725
  19. CLOZARIL [Suspect]
     Indication: SCHIZOPHRENIA
     Dosage: 500 MG, DAILY
     Route: 048
     Dates: start: 20110705
  20. CLOZARIL [Suspect]
     Dosage: 25 MG, DAILY
     Route: 048
     Dates: start: 20110705, end: 20110706
  21. BLONANSERIN [Concomitant]
     Dosage: 24 MG
     Dates: start: 20110718
  22. CEFTRIAXONE SODIUM [Concomitant]
     Dosage: 2000 MG
     Dates: start: 20110722, end: 20110920
  23. CEFTRIAXONE SODIUM [Concomitant]
     Dosage: 3000 MG
  24. CLOZARIL [Suspect]
     Dosage: 100 MG, DAILY
     Route: 048
     Dates: start: 20110712, end: 20110713
  25. CLOZARIL [Suspect]
     Dosage: 125 MG, DAILY
     Route: 048
     Dates: start: 20110714, end: 20110718
  26. CEFTRIAXONE SODIUM [Concomitant]
     Dosage: 4000 MG

REACTIONS (2)
  - URINARY TRACT INFECTION [None]
  - PYELONEPHRITIS [None]
